FAERS Safety Report 5121325-0 (Version None)
Quarter: 2006Q4

REPORT INFORMATION
  Report Type: 
  Country: None (occurrence: None)
  Receive Date: 20061002
  Receipt Date: 20060919
  Transmission Date: 20070319
  Serious: Yes (Other)
  Sender: FDA-Public Use
  Company Number: 2006103086

PATIENT
  Age: 15 Year
  Sex: Male

DRUGS (1)
  1. HALCION [Suspect]
     Dosage: ORAL
     Route: 048
     Dates: start: 20060824

REACTIONS (3)
  - DIZZINESS [None]
  - RESTLESSNESS [None]
  - SELF-MEDICATION [None]
